FAERS Safety Report 8447128-7 (Version None)
Quarter: 2012Q2

REPORT INFORMATION
  Report Type: 
  Country: None (occurrence: None)
  Receive Date: 20120619
  Receipt Date: 20110828
  Transmission Date: 20120825
  Serious: No
  Sender: FDA-Public Use
  Company Number: US-PFIZER INC-K201101003

PATIENT
  Sex: Female
  Weight: 81.633 kg

DRUGS (3)
  1. LEVOXYL [Suspect]
     Dosage: 88 UG, 1X/DAY
     Route: 048
     Dates: start: 20100901, end: 20110829
  2. LEVOXYL [Suspect]
     Indication: HYPOTHYROIDISM
     Dosage: 25 UG, 1X/DAY
     Route: 048
     Dates: start: 20100701, end: 20100901
  3. LEVOXYL [Suspect]
     Dosage: 88 UG, 1X/DAY
     Route: 048
     Dates: start: 20110830

REACTIONS (5)
  - FEELING ABNORMAL [None]
  - SOMNOLENCE [None]
  - HEADACHE [None]
  - CONFUSIONAL STATE [None]
  - PAIN [None]
